FAERS Safety Report 11581431 (Version 1)
Quarter: 2015Q4

REPORT INFORMATION
  Report Type: Spontaneous
  Country: US (occurrence: US)
  Receive Date: 20151001
  Receipt Date: 20151001
  Transmission Date: 20160304
  Serious: No
  Sender: FDA-Public Use
  Company Number: US-ROCHE-682067

PATIENT
  Sex: Male

DRUGS (1)
  1. PEGASYS [Suspect]
     Active Substance: PEGINTERFERON ALFA-2A
     Indication: HEPATITIS C
     Dosage: SIZE: 0.5 ML
     Route: 058

REACTIONS (6)
  - Needle issue [Unknown]
  - Neutrophil count decreased [Recovering/Resolving]
  - Aphonia [Unknown]
  - Nasopharyngitis [Unknown]
  - Product quality issue [Unknown]
  - Rash [Not Recovered/Not Resolved]

NARRATIVE: CASE EVENT DATE: 200908
